FAERS Safety Report 4897762-6 (Version None)
Quarter: 2006Q1

REPORT INFORMATION
  Report Type: 
  Country: None (occurrence: None)
  Receive Date: 20060201
  Receipt Date: 20060126
  Transmission Date: 20060701
  Serious: Yes (Death, Congenital Anomaly)
  Sender: FDA-Public Use
  Company Number: 2006CG00194

PATIENT

DRUGS (1)
  1. ZOMIG [Suspect]
     Indication: MIGRAINE
     Route: 064

REACTIONS (1)
  - CONGENITAL DIAPHRAGMATIC HERNIA [None]
